FAERS Safety Report 9485058 (Version 1)
Quarter: 2013Q3

REPORT INFORMATION
  Report Type: Spontaneous
  Country: US (occurrence: US)
  Receive Date: 20130828
  Receipt Date: 20130828
  Transmission Date: 20140515
  Serious: No
  Sender: FDA-Public Use
  Company Number: US-ABBOTT-13P-163-1104059-00

PATIENT
  Age: 53 Year
  Sex: Male
  Weight: 115.32 kg

DRUGS (10)
  1. ANDROGEL [Suspect]
     Indication: BLOOD TESTOSTERONE DECREASED
     Dates: start: 2012, end: 201303
  2. AMLODIPINE [Concomitant]
     Indication: HYPERTENSION
  3. HYDROCHLOROTHIAZIDE [Concomitant]
     Indication: HYPERTENSION
  4. PLAVIX [Concomitant]
     Indication: CARDIAC ANEURYSM
  5. BABY ASPIRIN [Concomitant]
     Indication: CARDIAC DISORDER
  6. BACLOFEN [Concomitant]
     Indication: BACK DISORDER
  7. TRAMADOL [Concomitant]
     Indication: BACK PAIN
  8. REQUIP [Concomitant]
     Indication: RESTLESS LEGS SYNDROME
  9. FINASTERIDE [Concomitant]
     Indication: PROSTATOMEGALY
  10. TIAZANDINE [Concomitant]
     Indication: PROSTATOMEGALY

REACTIONS (3)
  - Negative thoughts [Not Recovered/Not Resolved]
  - Mood altered [Not Recovered/Not Resolved]
  - Asthenia [Not Recovered/Not Resolved]
